FAERS Safety Report 6353501-3 (Version None)
Quarter: 2009Q3

REPORT INFORMATION
  Report Type: 
  Country: None (occurrence: None)
  Receive Date: 20090912
  Receipt Date: 20090622
  Transmission Date: 20100115
  Serious: Yes (Other)
  Sender: FDA-Public Use
  Company Number: US-ABBOTT-08P-163-0471464-00

PATIENT
  Sex: Female
  Weight: 86.26 kg

DRUGS (9)
  1. HUMIRA [Suspect]
     Indication: PSORIASIS
     Dates: start: 20080501, end: 20080501
  2. OMEPRAZOLE SODIUM [Concomitant]
     Indication: ABDOMINAL DISCOMFORT
     Dosage: DAILY
     Route: 048
  3. FISH OIL [Concomitant]
     Indication: CARDIAC DISORDER
     Route: 048
  4. ROSIGLITAZONE [Concomitant]
     Indication: DIABETES MELLITUS
     Dosage: DAILY
     Route: 048
  5. LOTREL [Concomitant]
     Indication: CARDIAC DISORDER
  6. ATORVASTATIN CALCIUM [Concomitant]
     Indication: BLOOD CHOLESTEROL
     Route: 048
  7. ASPIRIN [Concomitant]
     Indication: CARDIAC DISORDER
     Dosage: DAILY
     Route: 048
  8. METFORMIN HCL [Concomitant]
     Indication: DIABETES MELLITUS
     Dosage: DAILY
     Route: 048
  9. METFORMIN HCL [Concomitant]
     Route: 048

REACTIONS (4)
  - CATARACT [None]
  - EYELID DISORDER [None]
  - INCORRECT DOSE ADMINISTERED [None]
  - VISUAL IMPAIRMENT [None]
